FAERS Safety Report 6006937-4 (Version None)
Quarter: 2008Q4

REPORT INFORMATION
  Report Type: 
  Country: None (occurrence: None)
  Receive Date: 20081217
  Receipt Date: 20071126
  Transmission Date: 20090506
  Serious: No
  Sender: FDA-Public Use
  Company Number: US-ASTRAZENECA-2007UW27043

PATIENT
  Age: 66 Year
  Sex: Female
  Weight: 122.5 kg

DRUGS (5)
  1. CRESTOR [Suspect]
     Indication: BLOOD CHOLESTEROL
  2. DIOVAN [Concomitant]
  3. SYNTHROID [Concomitant]
  4. DILTIAZEM [Concomitant]
  5. TRAVATAN [Concomitant]

REACTIONS (2)
  - FEELING COLD [None]
  - INSOMNIA [None]
